FAERS Safety Report 5303301-8 (Version None)
Quarter: 2007Q2

REPORT INFORMATION
  Report Type: 
  Country: None (occurrence: None)
  Receive Date: 20070420
  Receipt Date: 20070412
  Transmission Date: 20071010
  Serious: No
  Sender: FDA-Public Use
  Company Number: GB-GLAXOSMITHKLINE-B0464261A

PATIENT
  Age: 81 Year
  Sex: Female

DRUGS (1)
  1. SERETIDE [Suspect]
     Indication: ASTHMA
     Dosage: 10PUFF TWICE PER DAY
     Route: 055

REACTIONS (1)
  - NO ADVERSE EFFECT [None]
